FAERS Safety Report 19722812 (Version 1)
Quarter: 2021Q3

REPORT INFORMATION
  Report Type: Spontaneous
  Country: US (occurrence: US)
  Receive Date: 20210819
  Receipt Date: 20210819
  Transmission Date: 20211014
  Serious: No
  Sender: FDA-Public Use
  Company Number: US-VALIDUS PHARMACEUTICALS LLC-US-2021VAL001180

PATIENT
  Sex: Female

DRUGS (1)
  1. MARPLAN [Suspect]
     Active Substance: ISOCARBOXAZID
     Indication: PRODUCT USED FOR UNKNOWN INDICATION
     Dosage: 20 MG, QD
     Route: 065

REACTIONS (3)
  - Hallucination, auditory [Unknown]
  - Insomnia [Unknown]
  - Feeling abnormal [Unknown]
